FAERS Safety Report 11160307 (Version 2)
Quarter: 2015Q3

REPORT INFORMATION
  Report Type: Spontaneous
  Country: DE (occurrence: DE)
  Receive Date: 20150603
  Receipt Date: 20150716
  Transmission Date: 20151125
  Serious: Yes (Other)
  Sender: FDA-Public Use
  Company Number: PHHY2015DE066481

PATIENT
  Age: 16 Year
  Sex: Male
  Weight: 55 kg

DRUGS (5)
  1. RITALIN LA [Suspect]
     Active Substance: METHYLPHENIDATE HYDROCHLORIDE
     Dosage: 30 MG, QD
     Route: 065
     Dates: end: 201501
  2. RITALIN LA [Suspect]
     Active Substance: METHYLPHENIDATE HYDROCHLORIDE
     Dosage: 30 MG, WITH PAUSES DURING WEEKENDS AND HOLIDAYS
     Route: 065
     Dates: start: 2009
  3. RITALIN LA [Suspect]
     Active Substance: METHYLPHENIDATE HYDROCHLORIDE
     Dosage: 30 MG, QD
     Route: 065
     Dates: start: 2012
  4. RITALIN LA [Suspect]
     Active Substance: METHYLPHENIDATE HYDROCHLORIDE
     Dosage: 30 MG, QD
     Route: 065
     Dates: end: 20150213
  5. RITALIN LA [Suspect]
     Active Substance: METHYLPHENIDATE HYDROCHLORIDE
     Indication: ATTENTION DEFICIT/HYPERACTIVITY DISORDER
     Dosage: 5 MG, WITH PAUSES
     Route: 065
     Dates: start: 2006

REACTIONS (12)
  - Heart rate decreased [Unknown]
  - Ventricular tachycardia [Recovered/Resolved]
  - Ventricular tachycardia [Unknown]
  - Heart rate increased [Unknown]
  - Blood pressure increased [Recovering/Resolving]
  - Fatigue [Recovering/Resolving]
  - Medication error [Unknown]
  - Pericardial effusion [Unknown]
  - Blood pressure decreased [Recovering/Resolving]
  - Throat tightness [Unknown]
  - Arrhythmia [Unknown]
  - Loss of consciousness [Recovered/Resolved]

NARRATIVE: CASE EVENT DATE: 201502
